FAERS Safety Report 9395718 (Version 1)
Quarter: 2013Q3

REPORT INFORMATION
  Report Type: Spontaneous
  Country: US (occurrence: US)
  Receive Date: 20130711
  Receipt Date: 20130711
  Transmission Date: 20140515
  Serious: No
  Sender: FDA-Public Use
  Company Number: US-BRISTOL-MYERS SQUIBB COMPANY-18995167

PATIENT
  Sex: Male

DRUGS (3)
  1. NULOJIX [Suspect]
     Indication: RENAL TRANSPLANT
     Dates: start: 201304
  2. PREDNISONE [Concomitant]
     Dosage: 10 MG DECREASED TO 7.5MG AND 5 MG/2 WKS; INCREASED TO 7.5 MG ON 31MAY2013; RECENT DOSE: 5 MG
  3. LASIX [Concomitant]

REACTIONS (1)
  - Blood creatinine increased [Recovered/Resolved]
